FAERS Safety Report 4444716-X (Version None)
Quarter: 2004Q3

REPORT INFORMATION
  Report Type: 
  Country: None (occurrence: None)
  Receive Date: 20040903
  Receipt Date: 20040824
  Transmission Date: 20050211
  Serious: Yes (Disabling, Other)
  Sender: FDA-Public Use
  Company Number: HQWYE36317AUG04

PATIENT
  Age: 27 Year
  Sex: Female
  Weight: 50 kg

DRUGS (5)
  1. MYAMBUTOL [Suspect]
     Indication: TUBERCULOSIS
     Dosage: 800 MG DAILY 047
  2. ISONIAZID [Concomitant]
  3. RIFAMPICIN [Concomitant]
  4. PYRIDOXINE [Concomitant]
  5. VITAMIN B COMPLEX, FOLIC ACID, CALCIUM CARBONATE, ERYTHROPOIETIN [Concomitant]

REACTIONS (4)
  - BLINDNESS [None]
  - MEDICATION ERROR [None]
  - OPTIC ATROPHY [None]
  - OPTIC NEURITIS [None]
